FAERS Safety Report 4863958-2 (Version None)
Quarter: 2005Q4

REPORT INFORMATION
  Report Type: 
  Country: None (occurrence: None)
  Receive Date: 20051222
  Receipt Date: 20051212
  Transmission Date: 20060501
  Serious: Yes (Death, Hospitalization, Other)
  Sender: FDA-Public Use
  Company Number: GB-BRISTOL-MYERS SQUIBB COMPANY-13210877

PATIENT
  Age: 36 Year
  Sex: Male
  Weight: 84 kg

DRUGS (5)
  1. TAXOL [Suspect]
     Indication: GERM CELL CANCER
     Route: 042
     Dates: start: 20051011
  2. BLEOMYCIN [Concomitant]
     Dates: start: 20051011
  3. CISPLATIN [Concomitant]
     Dates: start: 20051011
  4. ETOPOSIDE [Concomitant]
     Dates: start: 20051011
  5. FILGRASTIM [Concomitant]

REACTIONS (7)
  - CANDIDA SEPSIS [None]
  - DEEP VEIN THROMBOSIS [None]
  - DIARRHOEA HAEMORRHAGIC [None]
  - NEUTROPENIA [None]
  - RECTAL HAEMORRHAGE [None]
  - RENAL FAILURE ACUTE [None]
  - TESTICULAR CANCER METASTATIC [None]
